FAERS Safety Report 7525981-9 (Version None)
Quarter: 2011Q2

REPORT INFORMATION
  Report Type: 
  Country: None (occurrence: None)
  Receive Date: 20110606
  Receipt Date: 20110412
  Transmission Date: 20111010
  Serious: Yes (Hospitalization)
  Sender: FDA-Public Use
  Company Number: US-ROCHE-763276

PATIENT
  Sex: Female
  Weight: 70.8 kg

DRUGS (9)
  1. PEGINTERFERON ALFA-2A [Suspect]
     Dosage: MED KIT NO: 400033
     Route: 048
     Dates: start: 20110202, end: 20110223
  2. ZOFRAN [Concomitant]
     Dosage: FREQUENCY: Q8.
     Route: 048
  3. BENICAR [Concomitant]
     Indication: HYPERTENSION
     Dosage: FREQUENCY: ONCE DAILY
     Route: 048
  4. METFORMIN HCL [Concomitant]
     Dosage: ONCE DAILY.
     Route: 048
  5. RIBAVIRIN [Suspect]
     Dosage: FREQUENCY: DAILY/DIVIDED DOSES.
     Route: 048
     Dates: start: 20110202
  6. RIBAVIRIN [Suspect]
     Dosage: RIBAVIRIN WAS DECREASED . FREQUENCY: DAILY/DIVIDED DOSES.
     Route: 048
     Dates: start: 20110221, end: 20110228
  7. TELAPREVIR [Suspect]
     Dosage: MED KIT NO: 100033
     Route: 048
     Dates: start: 20110202, end: 20110228
  8. CLOBETASOL PROPIONATE [Concomitant]
     Indication: ECZEMA
     Dosage: DOSE: 0.05 AS NECESSARY
  9. ASPIRIN [Concomitant]
     Indication: PROPHYLAXIS
     Dosage: ONCE DAILY. START DATE: PRE TRIAL.
     Route: 048

REACTIONS (2)
  - ANAEMIA [None]
  - DEHYDRATION [None]
